FAERS Safety Report 9579544 (Version 2)
Quarter: 2013Q4

REPORT INFORMATION
  Report Type: Spontaneous
  Country: US (occurrence: US)
  Receive Date: 20131001
  Receipt Date: 20131001
  Transmission Date: 20140711
  Serious: No
  Sender: FDA-Public Use
  Company Number: US-AMGEN-USASP2013006038

PATIENT
  Age: 51 Year
  Sex: Male
  Weight: 106 kg

DRUGS (12)
  1. ENBREL [Suspect]
     Indication: PSORIASIS
     Dosage: 50 MG, QWK
     Route: 058
     Dates: start: 20121120
  2. ENBREL [Suspect]
     Indication: PSORIATIC ARTHROPATHY
  3. METHOTREXATE [Concomitant]
     Dosage: UNK
  4. LIPITOR [Concomitant]
     Dosage: 80 MG, UNK
  5. EFFEXOR [Concomitant]
     Dosage: 75 MG, UNK
  6. BUSPAR [Concomitant]
     Dosage: 5 MG, UNK
  7. SONATA                             /00061001/ [Concomitant]
     Dosage: 5 MG, UNK
  8. NEXIUM                             /01479302/ [Concomitant]
     Dosage: 40 MG, UNK
  9. ASPIRIN [Concomitant]
     Dosage: 81 MG, CHW
  10. FISH OIL [Concomitant]
     Dosage: UNK
  11. VITAMIN D                          /00107901/ [Concomitant]
     Dosage: 1000 UNIT, UNK
  12. MULTIVITAMINS, PLAIN [Concomitant]
     Dosage: UNK

REACTIONS (2)
  - Gastrointestinal disorder [Unknown]
  - Lactose intolerance [Unknown]
